FAERS Safety Report 9557773 (Version 2)
Quarter: 2013Q4

REPORT INFORMATION
  Report Type: Spontaneous
  Country: US (occurrence: US)
  Receive Date: 20130926
  Receipt Date: 20131030
  Transmission Date: 20140711
  Serious: Yes (Hospitalization)
  Sender: FDA-Public Use
  Company Number: US-JNJFOC-20130914246

PATIENT
  Sex: Male

DRUGS (1)
  1. INVOKANA [Suspect]
     Indication: DIABETES MELLITUS
     Route: 048

REACTIONS (2)
  - Hypotension [Unknown]
  - Loss of consciousness [Unknown]
